FAERS Safety Report 23074514 (Version 1)
Quarter: 2023Q4

REPORT INFORMATION
  Report Type: Spontaneous
  Country: US (occurrence: None)
  Receive Date: 20231016
  Receipt Date: 20231016
  Transmission Date: 20240110
  Serious: Yes (unspecified)
  Sender: FDA-Public Use
  Company Number: None

PATIENT
  Age: 71 Year
  Sex: Male
  Weight: 97 kg

DRUGS (2)
  1. OZEMPIC [Suspect]
     Active Substance: SEMAGLUTIDE
     Indication: Diabetes mellitus
     Dates: start: 20231005, end: 20231005
  2. TRULICITY [Suspect]
     Active Substance: DULAGLUTIDE

REACTIONS (6)
  - Encephalopathy [None]
  - Memory impairment [None]
  - Lethargy [None]
  - Decreased appetite [None]
  - Nausea [None]
  - Confusional state [None]

NARRATIVE: CASE EVENT DATE: 20231016
